FAERS Safety Report 12788595 (Version 6)
Quarter: 2021Q3

REPORT INFORMATION
  Report Type: Report from Study
  Country: CA (occurrence: CA)
  Receive Date: 20160928
  Receipt Date: 20210824
  Transmission Date: 20211014
  Serious: Yes (Hospitalization, Disabling, Other)
  Sender: FDA-Public Use
  Company Number: PHHY2016CA017863

PATIENT
  Age: 43 Year
  Sex: Female

DRUGS (3)
  1. TOPIRAMATE. [Concomitant]
     Active Substance: TOPIRAMATE
     Indication: PRODUCT USED FOR UNKNOWN INDICATION
     Dosage: UNK
     Route: 065
  2. GILENYA [Suspect]
     Active Substance: FINGOLIMOD HYDROCHLORIDE
     Indication: RELAPSING-REMITTING MULTIPLE SCLEROSIS
     Dosage: 0.5 (UNIT NOT REPORTED), QD
     Route: 048
     Dates: start: 20160208, end: 20210501
  3. GILENYA [Suspect]
     Active Substance: FINGOLIMOD HYDROCHLORIDE
     Indication: MULTIPLE SCLEROSIS

REACTIONS (11)
  - Pain in extremity [Recovering/Resolving]
  - Asthenia [Unknown]
  - Lymphopenia [Recovered/Resolved with Sequelae]
  - Treatment failure [Unknown]
  - General physical health deterioration [Recovered/Resolved with Sequelae]
  - Gait disturbance [Recovering/Resolving]
  - Balance disorder [Recovering/Resolving]
  - Dry mouth [Unknown]
  - Multiple sclerosis relapse [Recovered/Resolved with Sequelae]
  - Myelitis [Recovered/Resolved with Sequelae]
  - Rebound effect [Unknown]

NARRATIVE: CASE EVENT DATE: 20160208
